FAERS Safety Report 8454159-X (Version None)
Quarter: 2012Q2

REPORT INFORMATION
  Report Type: 
  Country: None (occurrence: None)
  Receive Date: 20120620
  Receipt Date: 20120614
  Transmission Date: 20120825
  Serious: Yes (Hospitalization, Other)
  Sender: FDA-Public Use
  Company Number: US-ABBOTT-12P-163-0935604-00

PATIENT
  Sex: Male
  Weight: 126.67 kg

DRUGS (13)
  1. POTASSIUM CHLORIDE [Concomitant]
     Indication: MINERAL SUPPLEMENTATION
     Dates: start: 20120301
  2. LIPITOR (GENERIC) [Concomitant]
     Indication: BLOOD CHOLESTEROL INCREASED
  3. CASIDEX [Concomitant]
     Indication: PROSTATE CANCER
     Dates: start: 20110201
  4. COQ10 [Concomitant]
     Indication: ASTHENIA
  5. LUPRON DEPOT [Suspect]
     Indication: PROSTATE CANCER
     Route: 030
     Dates: start: 20120118, end: 20120119
  6. NAPROXEN [Concomitant]
     Indication: OSTEOARTHRITIS
  7. LUPRON DEPOT [Suspect]
     Indication: PROSTATE CANCER
     Dates: start: 20110101, end: 20110101
  8. LUPRON DEPOT [Suspect]
     Indication: PROSTATE CANCER
     Dates: start: 20110214, end: 20110301
  9. SENIOR VITAMIN [Concomitant]
     Indication: VITAMIN SUPPLEMENTATION
  10. FIBER SUPPLEMENT [Concomitant]
     Indication: BOWEL MOVEMENT IRREGULARITY
  11. FLOMAX [Concomitant]
     Indication: PROSTATIC DISORDER
     Dates: start: 20120301
  12. TORSEMIDE [Concomitant]
     Indication: SWELLING
     Dates: start: 20120301
  13. ASPIRIN [Concomitant]
     Indication: CARDIAC DISORDER

REACTIONS (5)
  - WALKING AID USER [None]
  - GUILLAIN-BARRE SYNDROME [None]
  - SCRATCH [None]
  - ABASIA [None]
  - FALL [None]
